FAERS Safety Report 12908313 (Version 1)
Quarter: 2016Q4

REPORT INFORMATION
  Report Type: Spontaneous
  Country: BR (occurrence: BR)
  Receive Date: 20161103
  Receipt Date: 20161103
  Transmission Date: 20170207
  Serious: Yes (Hospitalization, Other)
  Sender: FDA-Public Use
  Company Number: BR-009507513-1609BRA005875

PATIENT
  Sex: Female
  Weight: 67 kg

DRUGS (2)
  1. NUVARING [Suspect]
     Active Substance: ETHINYL ESTRADIOL\ETONOGESTREL
     Indication: CONTRACEPTION
     Dosage: 3 WEEKS OF USE AND ONE WEEK OF PAUSE
     Route: 067
     Dates: start: 2013, end: 20160819
  2. NUVARING [Suspect]
     Active Substance: ETHINYL ESTRADIOL\ETONOGESTREL
     Dosage: 3 WEEKS OF USE AND ONE WEEK OF PAUSE
     Route: 067
     Dates: start: 20160908

REACTIONS (4)
  - Cholelithiasis [Recovered/Resolved]
  - Migraine [Not Recovered/Not Resolved]
  - Umbilical hernia [Recovered/Resolved]
  - Product use issue [Unknown]

NARRATIVE: CASE EVENT DATE: 2015
